FAERS Safety Report 19405337 (Version 3)
Quarter: 2021Q3

REPORT INFORMATION
  Report Type: Report from Study
  Country: US (occurrence: US)
  Receive Date: 20210611
  Receipt Date: 20210819
  Transmission Date: 20211014
  Serious: Yes (Other)
  Sender: FDA-Public Use
  Company Number: US-AUROBINDO-AUR-APL-2021-025107

PATIENT
  Age: 58 Year
  Sex: Male
  Weight: 95.25 kg

DRUGS (2)
  1. BELEODAQ [Suspect]
     Active Substance: BELINOSTAT
     Indication: PERIPHERAL T-CELL LYMPHOMA UNSPECIFIED STAGE I
     Dosage: UNK
     Route: 065
  2. BELEODAQ [Suspect]
     Active Substance: BELINOSTAT
     Dosage: DOSE: 100 UNSPECIFIED UNITS.
     Route: 065
     Dates: start: 202102

REACTIONS (1)
  - Peripheral T-cell lymphoma unspecified recurrent [Unknown]
